FAERS Safety Report 14048377 (Version 1)
Quarter: 2017Q4

REPORT INFORMATION
  Report Type: Spontaneous
  Country: US (occurrence: US)
  Receive Date: 20171005
  Receipt Date: 20171005
  Transmission Date: 20180321
  Serious: Yes (Other)
  Sender: FDA-Public Use
  Company Number: US-ABBVIE-17P-163-2116699-00

PATIENT
  Sex: Female
  Weight: 57.2 kg

DRUGS (18)
  1. ENBREL [Suspect]
     Active Substance: ETANERCEPT
     Indication: RHEUMATOID ARTHRITIS
     Route: 065
  2. ADVIL [Suspect]
     Active Substance: IBUPROFEN
     Indication: PRODUCT USED FOR UNKNOWN INDICATION
     Route: 065
  3. SIMPONI [Suspect]
     Active Substance: GOLIMUMAB
     Indication: RHEUMATOID ARTHRITIS
     Route: 065
  4. HYDROCHLOROTHIAZIDE. [Concomitant]
     Active Substance: HYDROCHLOROTHIAZIDE
     Indication: PRODUCT USED FOR UNKNOWN INDICATION
     Dates: start: 2004
  5. REMICADE [Suspect]
     Active Substance: INFLIXIMAB
     Dosage: SECOND INFUSION
     Route: 065
  6. METHOTREXATE. [Concomitant]
     Active Substance: METHOTREXATE
     Indication: PRODUCT USED FOR UNKNOWN INDICATION
  7. XELJANZ [Suspect]
     Active Substance: TOFACITINIB CITRATE
     Indication: RHEUMATOID ARTHRITIS
     Route: 065
  8. ORENCIA [Concomitant]
     Active Substance: ABATACEPT
     Indication: PRODUCT USED FOR UNKNOWN INDICATION
  9. PREDNISONE. [Concomitant]
     Active Substance: PREDNISONE
     Indication: PRODUCT USED FOR UNKNOWN INDICATION
  10. LEVOTHYROXIN [Concomitant]
     Active Substance: LEVOTHYROXINE
     Indication: PRODUCT USED FOR UNKNOWN INDICATION
  11. HUMIRA [Suspect]
     Active Substance: ADALIMUMAB
     Indication: RHEUMATOID ARTHRITIS
     Route: 058
  12. XELJANZ [Suspect]
     Active Substance: TOFACITINIB CITRATE
     Route: 065
     Dates: start: 2017
  13. REMICADE [Suspect]
     Active Substance: INFLIXIMAB
     Indication: RHEUMATOID ARTHRITIS
     Dosage: FIRST INFUSION
     Route: 065
  14. XELJANZ [Suspect]
     Active Substance: TOFACITINIB CITRATE
     Indication: PAIN IN EXTREMITY
     Route: 065
     Dates: start: 201402
  15. RITUXAN [Concomitant]
     Active Substance: RITUXIMAB
     Indication: PRODUCT USED FOR UNKNOWN INDICATION
  16. CALCIUM + VITAMIN D3 [Concomitant]
     Active Substance: CALCIUM CARBONATE\CHOLECALCIFEROL
     Indication: PRODUCT USED FOR UNKNOWN INDICATION
  17. XELJANZ [Suspect]
     Active Substance: TOFACITINIB CITRATE
     Route: 065
     Dates: end: 2017
  18. SIMVASTATIN. [Concomitant]
     Active Substance: SIMVASTATIN
     Indication: PRODUCT USED FOR UNKNOWN INDICATION

REACTIONS (25)
  - Drug ineffective [Unknown]
  - Pain in extremity [Unknown]
  - Drug effect incomplete [Recovering/Resolving]
  - Urosepsis [Unknown]
  - Urine odour abnormal [Unknown]
  - Joint swelling [Unknown]
  - Fluid retention [Unknown]
  - Heart rate increased [Unknown]
  - Erythema [Unknown]
  - Tympanic membrane perforation [Recovering/Resolving]
  - Hand deformity [Unknown]
  - Foot deformity [Unknown]
  - Rheumatoid nodule [Unknown]
  - Ear infection [Recovering/Resolving]
  - Pelvic pain [Unknown]
  - Ear discomfort [Unknown]
  - Deafness [Recovered/Resolved]
  - Anaphylactic reaction [Unknown]
  - Immunodeficiency [Unknown]
  - Back pain [Unknown]
  - Heart rate irregular [Unknown]
  - Urinary tract infection [Unknown]
  - Apnoea [Unknown]
  - Arthralgia [Unknown]
  - Middle ear effusion [Unknown]

NARRATIVE: CASE EVENT DATE: 2015
